FAERS Safety Report 20749369 (Version 1)
Quarter: 2022Q2

REPORT INFORMATION
  Report Type: Spontaneous
  Country: JP (occurrence: JP)
  Receive Date: 20220426
  Receipt Date: 20220426
  Transmission Date: 20220721
  Serious: Yes (Hospitalization)
  Sender: FDA-Public Use
  Company Number: JP-ferring-EVA202200431FERRINGPH

PATIENT

DRUGS (4)
  1. DESMOPRESSIN [Suspect]
     Active Substance: DESMOPRESSIN
     Indication: Hypothalamo-pituitary disorder
     Dosage: UNK
     Route: 045
  2. DESMOPRESSIN [Suspect]
     Active Substance: DESMOPRESSIN
     Indication: Diabetes insipidus
     Dosage: 2 DOSAGE FORM, 2 TIMES DAILY
     Route: 045
  3. DESMOPRESSIN ACETATE [Suspect]
     Active Substance: DESMOPRESSIN ACETATE
     Indication: Diabetes insipidus
     Dosage: UNK
     Route: 065
  4. DESMOPRESSIN ACETATE [Suspect]
     Active Substance: DESMOPRESSIN ACETATE
     Indication: Hypothalamo-pituitary disorder

REACTIONS (3)
  - Dehydration [Recovering/Resolving]
  - Product administration error [Unknown]
  - Product administration error [Recovered/Resolved]
